FAERS Safety Report 13382695 (Version 2)
Quarter: 2017Q2

REPORT INFORMATION
  Report Type: Spontaneous
  Country: US (occurrence: US)
  Receive Date: 20170329
  Receipt Date: 20170613
  Transmission Date: 20170830
  Serious: Yes (Other)
  Sender: FDA-Public Use
  Company Number: US-AMGEN-USASP2017045498

PATIENT
  Age: 57 Year
  Sex: Female

DRUGS (1)
  1. PROLIA [Suspect]
     Active Substance: DENOSUMAB
     Indication: PRODUCT USED FOR UNKNOWN INDICATION
     Dosage: UNK
     Route: 065
     Dates: start: 201603

REACTIONS (5)
  - Pain in jaw [Unknown]
  - Musculoskeletal chest pain [Unknown]
  - Intracranial pressure increased [Unknown]
  - Papilloedema [Unknown]
  - Back pain [Unknown]

NARRATIVE: CASE EVENT DATE: 201611
